FAERS Safety Report 25854234 (Version 3)
Quarter: 2025Q4

REPORT INFORMATION
  Report Type: Spontaneous
  Country: JP (occurrence: JP)
  Receive Date: 20250926
  Receipt Date: 20251119
  Transmission Date: 20260117
  Serious: Yes (Life-Threatening, Hospitalization, Disabling)
  Sender: EISAI
  Company Number: JP-Eisai-EC-2025-197444

PATIENT
  Age: 71 Year
  Sex: Female
  Weight: 55 kg

DRUGS (12)
  1. LENVIMA [Suspect]
     Active Substance: LENVATINIB
     Indication: Endometrial cancer
     Dosage: DOSE AND FREQUENCY UNKNOWN
     Route: 048
     Dates: start: 20240111, end: 20250412
  2. LENVIMA [Suspect]
     Active Substance: LENVATINIB
     Dosage: DOSE AND FREQUENCY UNKNOWN
     Route: 048
  3. KEYTRUDA [Suspect]
     Active Substance: PEMBROLIZUMAB
     Indication: Endometrial cancer
     Route: 041
     Dates: start: 20241101, end: 20250314
  4. AMPICILLIN AND SULBACTAM [Concomitant]
     Active Substance: AMPICILLIN SODIUM\SULBACTAM SODIUM
     Indication: Sepsis
     Dosage: DOSE AND FREQUENCY UNKNOWN
  5. AMPICILLIN AND SULBACTAM [Concomitant]
     Active Substance: AMPICILLIN SODIUM\SULBACTAM SODIUM
     Indication: Cytokine release syndrome
  6. PREDNISOLONE [Concomitant]
     Active Substance: PREDNISOLONE
     Indication: Sepsis
     Dosage: DOSE AND FREQUENCY UNKNOWN (TAPERING)
  7. PREDNISOLONE [Concomitant]
     Active Substance: PREDNISOLONE
     Indication: Cytokine release syndrome
     Dosage: DOSE AND FREQUENCY UNKNOWN
  8. PREDNISOLONE [Concomitant]
     Active Substance: PREDNISOLONE
     Indication: Haemophagocytic lymphohistiocytosis
     Dosage: FREQUENCY UNKNOWN
  9. METHYLPREDNISOLONE [Concomitant]
     Active Substance: METHYLPREDNISOLONE
     Indication: Haemophagocytic lymphohistiocytosis
     Dosage: FREQUENCY UNKNOWN
  10. METHYLPREDNISOLONE [Concomitant]
     Active Substance: METHYLPREDNISOLONE
     Dosage: DOSE AND FREQUENCY UNKNOWN (TAPERING)
     Dates: start: 2025, end: 2025
  11. CYCLOSPORINE [Concomitant]
     Active Substance: CYCLOSPORINE
     Indication: Haemophagocytic lymphohistiocytosis
     Dosage: FREQUENCY UNKNOWN
  12. CYCLOSPORINE [Concomitant]
     Active Substance: CYCLOSPORINE
     Dosage: FREQUENCY UNKNOWN
     Dates: start: 2025, end: 2025

REACTIONS (3)
  - Immune thrombocytopenia [Recovered/Resolved with Sequelae]
  - Immobilisation syndrome [Unknown]
  - Varicella virus test positive [Unknown]

NARRATIVE: CASE EVENT DATE: 20250101
